FAERS Safety Report 10703427 (Version 1)
Quarter: 2015Q1

REPORT INFORMATION
  Report Type: Report from Study
  Country: NL (occurrence: NL)
  Receive Date: 20150112
  Receipt Date: 20150112
  Transmission Date: 20150721
  Serious: Yes (Other)
  Sender: FDA-Public Use
  Company Number: NL-AMGEN-NLDSL2015001156

PATIENT
  Age: 81 Year
  Sex: Female

DRUGS (1)
  1. ARANESP [Suspect]
     Active Substance: DARBEPOETIN ALFA
     Indication: PRODUCT USED FOR UNKNOWN INDICATION
     Dosage: 100 MUG, Q3WK
     Route: 058
     Dates: start: 20141028

REACTIONS (3)
  - Renal neoplasm [Unknown]
  - Haemoglobin abnormal [Unknown]
  - Haematuria [Unknown]

NARRATIVE: CASE EVENT DATE: 201412
